FAERS Safety Report 5865084-2 (Version None)
Quarter: 2008Q3

REPORT INFORMATION
  Report Type: 
  Country: None (occurrence: None)
  Receive Date: 20080829
  Receipt Date: 20080822
  Transmission Date: 20090109
  Serious: Yes (Hospitalization)
  Sender: FDA-Public Use
  Company Number: A0733531A

PATIENT
  Age: 48 Year
  Sex: Female
  Weight: 93.6 kg

DRUGS (11)
  1. AVANDIA [Suspect]
     Dosage: 8MG PER DAY
     Route: 048
     Dates: start: 19991027, end: 20000101
  2. PROZAC [Concomitant]
  3. PREVACID [Concomitant]
  4. VIOXX [Concomitant]
  5. TRIAMTERENE AND HYDROCHLOROTHIAZIDE [Concomitant]
  6. ESTRADIOL [Concomitant]
  7. VASOTEC [Concomitant]
  8. NITROGLYCERIN [Concomitant]
  9. HUMULIN R [Concomitant]
  10. ZEBETA [Concomitant]
     Dates: start: 20000101
  11. LOPRESSOR [Concomitant]
     Dates: start: 20000101

REACTIONS (5)
  - ANGINA UNSTABLE [None]
  - CARDIAC FAILURE CONGESTIVE [None]
  - CARDIOMYOPATHY [None]
  - CORONARY ARTERY DISEASE [None]
  - MYOCARDIAL INFARCTION [None]
